FAERS Safety Report 10645882 (Version 4)
Quarter: 2015Q1

REPORT INFORMATION
  Report Type: Spontaneous
  Country: BE (occurrence: BE)
  Receive Date: 20141211
  Receipt Date: 20150130
  Transmission Date: 20150720
  Serious: No
  Sender: FDA-Public Use
  Company Number: BE-NOVOPROD-431395

PATIENT
  Age: 84 Year
  Sex: Male
  Weight: 140 kg

DRUGS (4)
  1. ISOPHANE INSULIN [Suspect]
     Active Substance: INSULIN NOS
     Dosage: AFTERWARDS 2 DOSES
     Route: 065
     Dates: end: 2007
  2. ISOPHANE INSULIN [Suspect]
     Active Substance: INSULIN NOS
     Indication: PRODUCT USED FOR UNKNOWN INDICATION
     Dosage: START 1 DOSE
     Route: 065
     Dates: start: 2003
  3. METFORMIN [Concomitant]
     Active Substance: METFORMIN HYDROCHLORIDE
     Dosage: UNK
     Dates: start: 1995
  4. GLURENORM [Concomitant]
     Dosage: UNK
     Dates: start: 1995

REACTIONS (1)
  - Diabetes mellitus inadequate control [Recovered/Resolved]
